FAERS Safety Report 12388031 (Version 1)
Quarter: 2016Q2

REPORT INFORMATION
  Report Type: Spontaneous
  Country: FI (occurrence: FI)
  Receive Date: 20160520
  Receipt Date: 20160520
  Transmission Date: 20160815
  Serious: Yes (Life-Threatening, Other)
  Sender: FDA-Public Use
  Company Number: FI-ACCORD-040175

PATIENT
  Age: 38 Year
  Sex: Female
  Weight: 80 kg

DRUGS (10)
  1. CETIRIZINE [Concomitant]
     Active Substance: CETIRIZINE HYDROCHLORIDE
     Dosage: STRENGTH: 10 MG
     Route: 048
  2. RANITIDINE. [Concomitant]
     Active Substance: RANITIDINE
     Dosage: STRENGTH: 50 MG
     Route: 042
  3. OXYCONTIN [Concomitant]
     Active Substance: OXYCODONE HYDROCHLORIDE
     Indication: PAIN
     Route: 048
     Dates: start: 20151110
  4. ORADEXON [Concomitant]
     Active Substance: DEXAMETHASONE
     Dosage: STRENGTH: 20 MG
     Route: 042
  5. EMEND [Concomitant]
     Active Substance: APREPITANT
     Dosage: STRENGTH: 125 MG
     Route: 048
  6. GRANISETRON [Concomitant]
     Active Substance: GRANISETRON
     Dosage: STRENGTH: 1 MG
     Route: 042
  7. OXYNORM [Concomitant]
     Active Substance: OXYCODONE HYDROCHLORIDE
     Indication: PAIN
     Dosage: 1- 6/DAY
     Route: 048
  8. PACLITAXEL ACCORD [Suspect]
     Active Substance: PACLITAXEL
     Indication: BREAST CANCER
     Dosage: STRENGTH: 6 MG/ML (50 ML)?ALSO RECEIVED ON 15-APR-2016??2 TIMES A WEEK CYCLE
     Dates: start: 20160426, end: 20160426
  9. KLEXANE [Concomitant]
     Active Substance: ENOXAPARIN
     Indication: PULMONARY EMBOLISM
     Route: 058
     Dates: start: 20160413
  10. XGEVA [Concomitant]
     Active Substance: DENOSUMAB
     Route: 058
     Dates: start: 20160108

REACTIONS (4)
  - Cough [Recovered/Resolved]
  - Loss of consciousness [Recovered/Resolved]
  - Seizure [Recovered/Resolved]
  - Erythema [Recovered/Resolved]

NARRATIVE: CASE EVENT DATE: 20160426
